FAERS Safety Report 10872431 (Version 3)
Quarter: 2015Q2

REPORT INFORMATION
  Report Type: Spontaneous
  Country: CA (occurrence: CA)
  Receive Date: 20150226
  Receipt Date: 20150414
  Transmission Date: 20150821
  Serious: Yes (Other)
  Sender: FDA-Public Use
  Company Number: CA-ROCHE-1201015

PATIENT
  Age: 60 Year
  Sex: Female
  Weight: 99.8 kg

DRUGS (15)
  1. XOLAIR [Suspect]
     Active Substance: OMALIZUMAB
     Route: 058
  2. TRYPTOPHAN [Concomitant]
     Active Substance: TRYPTOPHAN
  3. TECTA [Concomitant]
     Active Substance: PANTOPRAZOLE MAGNESIUM
  4. VOLTAREN [Concomitant]
     Active Substance: DICLOFENAC SODIUM
  5. SYMBICORT [Concomitant]
     Active Substance: BUDESONIDE\FORMOTEROL FUMARATE DIHYDRATE
  6. XOLAIR [Suspect]
     Active Substance: OMALIZUMAB
     Indication: ASTHMA
     Dosage: DOSE WAS INCREASED FROM 150MG TO 300MG
     Route: 058
     Dates: start: 20090707
  7. XOLAIR [Suspect]
     Active Substance: OMALIZUMAB
     Route: 058
  8. LYRICA [Concomitant]
     Active Substance: PREGABALIN
  9. ATORVASTATIN [Concomitant]
     Active Substance: ATORVASTATIN
  10. OMNARIS [Concomitant]
     Active Substance: CICLESONIDE
  11. BACLOFEN. [Concomitant]
     Active Substance: BACLOFEN
  12. ZYLOPRIM [Concomitant]
     Active Substance: ALLOPURINOL
  13. EFFEXOR XR [Concomitant]
     Active Substance: VENLAFAXINE HYDROCHLORIDE
  14. INDERAL [Concomitant]
     Active Substance: PROPRANOLOL HYDROCHLORIDE
     Dosage: INDERAL LA
     Route: 065
  15. TARGIN [Concomitant]
     Active Substance: NALOXONE HYDROCHLORIDE\OXYCODONE HYDROCHLORIDE
     Dosage: 10/5
     Route: 065

REACTIONS (15)
  - Fibula fracture [Recovering/Resolving]
  - Feeling abnormal [Unknown]
  - Somnolence [Unknown]
  - Initial insomnia [Unknown]
  - Depressed level of consciousness [Unknown]
  - Fall [Unknown]
  - Weight increased [Not Recovered/Not Resolved]
  - Pruritus generalised [Recovered/Resolved]
  - Insomnia [Unknown]
  - Fatigue [Not Recovered/Not Resolved]
  - Bronchospasm [Unknown]
  - Lower respiratory tract infection [Recovering/Resolving]
  - Sleep apnoea syndrome [Unknown]
  - Anxiety [Unknown]
  - Scar [Unknown]

NARRATIVE: CASE EVENT DATE: 20130227
